FAERS Safety Report 18553810 (Version 1)
Quarter: 2020Q4

REPORT INFORMATION
  Report Type: Other
  Country: CA (occurrence: CA)
  Receive Date: 20201127
  Receipt Date: 20201127
  Transmission Date: 20210114
  Serious: Yes (Other)
  Sender: FDA-Public Use
  Company Number: CA-APOTEX-2020AP022243

PATIENT

DRUGS (3)
  1. ERIBULIN MESILATE [Suspect]
     Active Substance: ERIBULIN
     Indication: NEOPLASM MALIGNANT
     Dosage: 1 MILLIGRAM/SQ. METER, CYCLICAL
     Route: 042
  2. DEXAMETHASONE. [Concomitant]
     Active Substance: DEXAMETHASONE
     Indication: PREMEDICATION
     Dosage: 10 MILLIGRAM
     Route: 042
  3. GEMCITABINE. [Suspect]
     Active Substance: GEMCITABINE
     Indication: NEOPLASM MALIGNANT
     Dosage: 1000 MILLIGRAM/SQ. METER, CYCLICAL
     Route: 042

REACTIONS (2)
  - Fatigue [Unknown]
  - Diarrhoea [Unknown]
